FAERS Safety Report 20516432 (Version 2)
Quarter: 2022Q1

REPORT INFORMATION
  Report Type: Report from Study
  Country: US (occurrence: None)
  Receive Date: 20220225
  Receipt Date: 20220304
  Transmission Date: 20220423
  Serious: Yes (Death, Life-Threatening, Hospitalization, Other)
  Sender: FDA-Public Use
  Company Number: US-ROCHE-3034856

PATIENT
  Age: 52 Year
  Sex: Male

DRUGS (16)
  1. ATEZOLIZUMAB [Suspect]
     Active Substance: ATEZOLIZUMAB
     Indication: Metastatic neoplasm
     Route: 041
     Dates: start: 20211221
  2. GLIPIZIDE [Concomitant]
     Active Substance: GLIPIZIDE
  3. METFORMIN [Concomitant]
     Active Substance: METFORMIN HYDROCHLORIDE
  4. AMLODIPINE [Concomitant]
     Active Substance: AMLODIPINE BESYLATE
  5. APIXABAN [Concomitant]
     Active Substance: APIXABAN
  6. ATORVASTATIN [Concomitant]
     Active Substance: ATORVASTATIN
  7. LISINOPRIL [Concomitant]
     Active Substance: LISINOPRIL
  8. ONDANSETRON [Concomitant]
     Active Substance: ONDANSETRON
  9. ACETAMINOPHEN [Concomitant]
     Active Substance: ACETAMINOPHEN
  10. IBUPROFEN [Concomitant]
     Active Substance: IBUPROFEN
  11. MORPHINE SULFATE [Concomitant]
     Active Substance: MORPHINE SULFATE
  12. OXYCODONE HYDROCHLORIDE [Concomitant]
     Active Substance: OXYCODONE HYDROCHLORIDE
  13. HYDROCORTISONE [Concomitant]
     Active Substance: HYDROCORTISONE
  14. PREDNISONE [Concomitant]
     Active Substance: PREDNISONE
  15. URSODIOL [Concomitant]
     Active Substance: URSODIOL
  16. NITROFURANTOIN [Concomitant]
     Active Substance: NITROFURANTOIN

REACTIONS (3)
  - Disease progression [Fatal]
  - Diabetic ketoacidosis [Not Recovered/Not Resolved]
  - Intestinal perforation [Not Recovered/Not Resolved]

NARRATIVE: CASE EVENT DATE: 20220201
